FAERS Safety Report 23131826 (Version 1)
Quarter: 2023Q4

REPORT INFORMATION
  Report Type: Spontaneous
  Country: US (occurrence: US)
  Receive Date: 20231101
  Receipt Date: 20231101
  Transmission Date: 20240110
  Serious: No
  Sender: FDA-Public Use
  Company Number: US-SA-SAC20231027001039

PATIENT
  Sex: Female

DRUGS (4)
  1. DUPIXENT [Suspect]
     Active Substance: DUPILUMAB
     Indication: Asthma
     Dosage: 300 MG, QOW
     Route: 058
  2. DUPIXENT [Suspect]
     Active Substance: DUPILUMAB
     Indication: Nasal polyps
  3. XOLAIR [Concomitant]
     Active Substance: OMALIZUMAB
     Indication: Asthma
  4. XOLAIR [Concomitant]
     Active Substance: OMALIZUMAB
     Indication: Chronic rhinosinusitis with nasal polyps

REACTIONS (1)
  - Arthralgia [Unknown]
